FAERS Safety Report 15070073 (Version 1)
Quarter: 2018Q2

REPORT INFORMATION
  Report Type: Report from Study
  Country: JP (occurrence: JP)
  Receive Date: 20180626
  Receipt Date: 20180626
  Transmission Date: 20180711
  Serious: Yes (Other)
  Sender: FDA-Public Use
  Company Number: JP-MYLANLABS-2018M1045194

PATIENT
  Age: 50 Year
  Sex: Female

DRUGS (5)
  1. ACETAMINOPHEN. [Concomitant]
     Active Substance: ACETAMINOPHEN
     Indication: PAIN
     Route: 065
  2. FENTANYL. [Suspect]
     Active Substance: FENTANYL
     Indication: PAIN
     Route: 042
  3. OXYCODONE [Suspect]
     Active Substance: OXYCODONE
     Indication: PAIN
     Dosage: LONG-ACTING OXYCODONE
     Route: 048
  4. OXYCODONE [Suspect]
     Active Substance: OXYCODONE
     Dosage: SHORT-ACTING OXYCODONE
     Route: 065
  5. NAPROXEN. [Concomitant]
     Active Substance: NAPROXEN
     Indication: PAIN
     Route: 065

REACTIONS (1)
  - Drug ineffective [Unknown]
